FAERS Safety Report 5284776-X (Version None)
Quarter: 2007Q1

REPORT INFORMATION
  Report Type: 
  Country: None (occurrence: None)
  Receive Date: 20061229
  Receipt Date: 20060614
  Transmission Date: 20070707
  Serious: Yes (Hospitalization)
  Sender: FDA-Public Use
  Company Number: PHEH2006US07815

PATIENT
  Sex: Male

DRUGS (7)
  1. CLOZARIL [Suspect]
     Indication: SCHIZOAFFECTIVE DISORDER
     Dosage: 200 MG, QHS, ORAL
     Route: 048
  2. LAMICTAL [Concomitant]
  3. ZOLOFT [Concomitant]
  4. LORAZEPAM [Concomitant]
  5. OXYCONTIN [Concomitant]
  6. SYNTHROID [Concomitant]
  7. BOTOX [Concomitant]

REACTIONS (4)
  - MOBILITY DECREASED [None]
  - PAIN IN EXTREMITY [None]
  - PARALYSIS [None]
  - RHABDOMYOLYSIS [None]
